FAERS Safety Report 8524247-8 (Version None)
Quarter: 2012Q3

REPORT INFORMATION
  Report Type: 
  Country: None (occurrence: None)
  Receive Date: 20120720
  Receipt Date: 20120713
  Transmission Date: 20120928
  Serious: Yes (Hospitalization)
  Sender: FDA-Public Use
  Company Number: US-PFIZER INC-2012066424

PATIENT
  Sex: Male

DRUGS (8)
  1. GLUCOTROL [Suspect]
     Dosage: 10 MG, UNK
     Dates: start: 20111127
  2. AMIODARONE HCL [Suspect]
     Indication: VENTRICULAR TACHYCARDIA
     Dosage: 150 MG, UNK
     Route: 042
     Dates: start: 20111231
  3. NIACIN [Concomitant]
     Dosage: UNK
  4. BLINDED THERAPY [Suspect]
     Indication: TYPE 2 DIABETES MELLITUS
     Dosage: UNK
     Route: 065
     Dates: start: 20110329
  5. PIOGLITAZONE [Suspect]
     Indication: TYPE 2 DIABETES MELLITUS
     Dosage: 30 MG, UNK
     Route: 065
     Dates: start: 20110512, end: 20120220
  6. GLUCOPHAGE [Suspect]
     Indication: TYPE 2 DIABETES MELLITUS
     Dosage: 500 MG, UNK
     Dates: end: 20110329
  7. ACETYLSALICYLIC ACID [Concomitant]
     Dosage: UNK
  8. GLUCOTROL [Suspect]
     Indication: TYPE 2 DIABETES MELLITUS
     Dosage: 15 MG, UNK
     Route: 065
     Dates: end: 20111102

REACTIONS (3)
  - ISCHAEMIC CARDIOMYOPATHY [None]
  - VENTRICULAR TACHYCARDIA [None]
  - ATRIAL FIBRILLATION [None]
